FAERS Safety Report 5394106-0 (Version None)
Quarter: 2007Q3

REPORT INFORMATION
  Report Type: 
  Country: None (occurrence: None)
  Receive Date: 20070720
  Receipt Date: 20070720
  Transmission Date: 20080115
  Serious: Yes (Hospitalization)
  Sender: FDA-Public Use
  Company Number: None

PATIENT
  Sex: Male
  Weight: 51.5 kg

DRUGS (1)
  1. TEMOZOLOMIDE [Suspect]
     Dosage: 5280 MG

REACTIONS (5)
  - BRONCHITIS [None]
  - CHRONIC OBSTRUCTIVE PULMONARY DISEASE [None]
  - CONDITION AGGRAVATED [None]
  - SPUTUM CULTURE POSITIVE [None]
  - STREPTOCOCCAL IDENTIFICATION TEST POSITIVE [None]
